FAERS Safety Report 13780418 (Version 1)
Quarter: 2017Q3

REPORT INFORMATION
  Report Type: Spontaneous
  Country: US (occurrence: US)
  Receive Date: 20170724
  Receipt Date: 20170724
  Transmission Date: 20171127
  Serious: No
  Sender: FDA-Public Use
  Company Number: US-009507513-1707USA008583

PATIENT
  Age: 72 Year
  Sex: Male

DRUGS (1)
  1. SINEMET [Suspect]
     Active Substance: CARBIDOPA\LEVODOPA

REACTIONS (3)
  - Constipation [Recovering/Resolving]
  - Hallucination [Recovered/Resolved]
  - Headache [Unknown]
